FAERS Safety Report 21406910 (Version 1)
Quarter: 2022Q4

REPORT INFORMATION
  Report Type: Spontaneous
  Country: GB (occurrence: None)
  Receive Date: 20221003
  Receipt Date: 20221003
  Transmission Date: 20230112
  Serious: Yes (Other)
  Sender: FDA-Public Use
  Company Number: None

PATIENT
  Age: 25 Year
  Sex: Female
  Weight: 83 kg

DRUGS (2)
  1. SALICYLIC ACID [Suspect]
     Active Substance: SALICYLIC ACID
     Indication: Drug therapy
     Dosage: OTHER QUANTITY : 1 1;?FREQUENCY : AT BEDTIME;?
     Route: 061
     Dates: start: 20220930, end: 20220930
  2. Ridgevidon [Concomitant]

REACTIONS (5)
  - Erythema [None]
  - Eye swelling [None]
  - Burning sensation [None]
  - Rash [None]
  - Pustule [None]

NARRATIVE: CASE EVENT DATE: 20220930
